FAERS Safety Report 24788352 (Version 1)
Quarter: 2024Q4

REPORT INFORMATION
  Report Type: Spontaneous
  Country: US (occurrence: None)
  Receive Date: 20241228
  Receipt Date: 20241228
  Transmission Date: 20250114
  Serious: Yes (Hospitalization)
  Sender: Public
  Company Number: None

PATIENT
  Sex: Female

DRUGS (11)
  1. ZELBORAF [Suspect]
     Active Substance: VEMURAFENIB
     Indication: Metastases to central nervous system
     Dosage: FREQUENCY : TWICE A DAY;?
     Route: 048
     Dates: start: 20241010
  2. ALPRAZOLAM TAB 0.25MG [Concomitant]
  3. AMLODIPINE TAB5MG [Concomitant]
  4. BRAFTOVI [Concomitant]
     Active Substance: ENCORAFENIB
  5. DEXAMETHASON TAB 1 MG [Concomitant]
  6. DEXAMETHASON TAB 2MG [Concomitant]
  7. DEXAMETHASONE [Concomitant]
     Active Substance: DEXAMETHASONE
  8. DIPHEN/ATROP TAB 2.5MG [Concomitant]
  9. GABAPENTIN CAP 100MG [Concomitant]
  10. HYDROCORT TAB 5MG [Concomitant]
  11. LATANOPROST SOL 0.005% [Concomitant]

REACTIONS (2)
  - Therapy interrupted [None]
  - Nonspecific reaction [None]
